FAERS Safety Report 5293922-3 (Version None)
Quarter: 2007Q2

REPORT INFORMATION
  Report Type: 
  Country: None (occurrence: None)
  Receive Date: 20070405
  Receipt Date: 20070323
  Transmission Date: 20071010
  Serious: Yes (Hospitalization)
  Sender: FDA-Public Use
  Company Number: 2007PV030695

PATIENT
  Age: 65 Year
  Sex: Female
  Weight: 103.8737 kg

DRUGS (8)
  1. BYETTA [Suspect]
     Indication: DIABETES MELLITUS NON-INSULIN-DEPENDENT
     Dosage: 5 MCG; BID; SC, 10 MCG;BID; SC, 5 MCG; BID; SC
     Route: 058
     Dates: start: 20060504, end: 20060609
  2. BYETTA [Suspect]
     Indication: DIABETES MELLITUS NON-INSULIN-DEPENDENT
     Dosage: 5 MCG; BID; SC, 10 MCG;BID; SC, 5 MCG; BID; SC
     Route: 058
     Dates: start: 20060609, end: 20061201
  3. BYETTA [Suspect]
     Indication: DIABETES MELLITUS NON-INSULIN-DEPENDENT
     Dosage: 5 MCG; BID; SC, 10 MCG;BID; SC, 5 MCG; BID; SC
     Route: 058
     Dates: start: 20070115
  4. ATENOLOL [Concomitant]
  5. DIOVAN [Concomitant]
  6. METFORMIN HCL [Concomitant]
  7. GLIMEPIRIDE [Concomitant]
  8. VESICARE [Concomitant]

REACTIONS (7)
  - CORONARY ARTERY STENOSIS [None]
  - HYPERLIPIDAEMIA [None]
  - INJECTION SITE BRUISING [None]
  - INJECTION SITE HAEMORRHAGE [None]
  - INJECTION SITE IRRITATION [None]
  - OBESITY [None]
  - VENOUS STASIS [None]
